FAERS Safety Report 9844810 (Version 2)
Quarter: 2014Q2

REPORT INFORMATION
  Report Type: Spontaneous
  Country: DE (occurrence: None)
  Receive Date: 20140122
  Receipt Date: 20140407
  Transmission Date: 20141212
  Serious: Yes (Other)
  Sender: FDA-Public Use
  Company Number: 1401-0099

PATIENT
  Age: 60 Year
  Sex: Female

DRUGS (1)
  1. EYLEA [Suspect]
     Indication: RETINAL PIGMENT EPITHELIOPATHY

REACTIONS (3)
  - Viral uveitis [None]
  - Off label use [None]
  - Herpes ophthalmic [None]
